FAERS Safety Report 11282918 (Version 1)
Quarter: 2015Q3

REPORT INFORMATION
  Report Type: Spontaneous
  Country: GB (occurrence: None)
  Receive Date: 20150716
  Receipt Date: 20150716
  Transmission Date: 20151125
  Serious: Yes (Death, Hospitalization, Other)
  Sender: FDA-Public Use
  Company Number: KAD201507-002111

PATIENT
  Age: 73 Year
  Sex: Female
  Weight: 46.5 kg

DRUGS (10)
  1. BETAHISTINE [Concomitant]
     Active Substance: BETAHISTINE
  2. DIGOXIN. [Concomitant]
     Active Substance: DIGOXIN
  3. PREGABALIN. [Concomitant]
     Active Substance: PREGABALIN
  4. RIBAVIRIN (RIBAVIRIN) [Suspect]
     Active Substance: RIBAVIRIN
     Indication: CHRONIC HEPATITIS C
     Dosage: RIGHT EYE
     Route: 048
     Dates: start: 20150413
  5. EXVIERA (DASABUVIR/ABT-333) [Suspect]
     Active Substance: DASABUVIR
     Indication: HEPATITIS C
     Dates: start: 20150413
  6. FLUOXETINE [Concomitant]
     Active Substance: FLUOXETINE\FLUOXETINE HYDROCHLORIDE
  7. OMEPRAZOLE. [Concomitant]
     Active Substance: OMEPRAZOLE
  8. FENTANYL. [Concomitant]
     Active Substance: FENTANYL
  9. VIEKIRA PAK [Suspect]
     Active Substance: DASABUVIR\OMBITASVIR\PARITAPREVIR\RITONAVIR
     Indication: HEPATITIS C
     Dosage: 12.5 MG OMBITASVIR, 75 MG PARATAPREVIR AND 50 MG RITONAVIR IN THE MORNING
     Route: 048
     Dates: start: 20150413
  10. ALENDRONIC ACID [Concomitant]
     Active Substance: ALENDRONIC ACID

REACTIONS (3)
  - Pneumonia [None]
  - Lethargy [None]
  - Malaise [None]

NARRATIVE: CASE EVENT DATE: 20150621
